FAERS Safety Report 6747429-4 (Version None)
Quarter: 2010Q2

REPORT INFORMATION
  Report Type: 
  Country: None (occurrence: None)
  Receive Date: 20100528
  Receipt Date: 20100521
  Transmission Date: 20101027
  Serious: Yes (Hospitalization, Other)
  Sender: FDA-Public Use
  Company Number: CA-BAYER-201023404NA

PATIENT
  Sex: Female

DRUGS (1)
  1. MIRENA [Suspect]
     Indication: DRUG USE FOR UNKNOWN INDICATION
     Dosage: FREQUENCY:CONTINUOUS
     Route: 015
     Dates: start: 20100121, end: 20100222

REACTIONS (8)
  - BLOOD IRON DECREASED [None]
  - BRONCHITIS VIRAL [None]
  - DIZZINESS [None]
  - FATIGUE [None]
  - IMMUNE SYSTEM DISORDER [None]
  - INFECTION [None]
  - LOSS OF CONSCIOUSNESS [None]
  - VAGINAL HAEMORRHAGE [None]
